FAERS Safety Report 5991618-3 (Version None)
Quarter: 2008Q4

REPORT INFORMATION
  Report Type: 
  Country: None (occurrence: None)
  Receive Date: 20081211
  Receipt Date: 20081204
  Transmission Date: 20090506
  Serious: Yes (Other)
  Sender: FDA-Public Use
  Company Number: US-ABBOTT-08P-163-0491164-00

PATIENT
  Sex: Female

DRUGS (2)
  1. LUPRON DEPOT [Suspect]
     Indication: ENDOMETRIOSIS
     Route: 030
     Dates: start: 20030101, end: 20030101
  2. LUPRON DEPOT [Suspect]
     Route: 030
     Dates: start: 20081104, end: 20081104

REACTIONS (6)
  - ABDOMINAL PAIN [None]
  - HEADACHE [None]
  - HOT FLUSH [None]
  - NIGHT SWEATS [None]
  - OVARIAN CYST [None]
  - UTERINE LEIOMYOMA [None]
